FAERS Safety Report 7929538-7 (Version None)
Quarter: 2011Q4

REPORT INFORMATION
  Report Type: 
  Country: None (occurrence: None)
  Receive Date: 20111121
  Receipt Date: 20111110
  Transmission Date: 20120403
  Serious: Yes (Hospitalization)
  Sender: FDA-Public Use
  Company Number: PL-JNJFOC-20111104424

PATIENT
  Sex: Male
  Weight: 66 kg

DRUGS (2)
  1. REMICADE [Suspect]
     Indication: RHEUMATOID ARTHRITIS
     Route: 042
     Dates: start: 20090820, end: 20110608
  2. METHOTREXATE [Concomitant]
     Route: 048
     Dates: start: 20070301

REACTIONS (1)
  - DIVERTICULITIS [None]
